FAERS Safety Report 16193298 (Version 1)
Quarter: 2019Q2

REPORT INFORMATION
  Report Type: Spontaneous
  Country: NO (occurrence: NO)
  Receive Date: 20190413
  Receipt Date: 20190413
  Transmission Date: 20190711
  Serious: Yes (Death)
  Sender: FDA-Public Use
  Company Number: NO-009507513-1904NOR004537

PATIENT
  Age: 68 Year
  Sex: Male

DRUGS (2)
  1. PEMBROLIZUMAB. [Suspect]
     Active Substance: PEMBROLIZUMAB
     Indication: LUNG CANCER METASTATIC
     Dosage: 200 MG EVERY 3 WEEKS, 2 DOSES IN TOTAL
     Route: 041
     Dates: start: 20190211, end: 20190304
  2. FRAGMIN [Concomitant]
     Active Substance: DALTEPARIN SODIUM
     Indication: EMBOLIC STROKE
     Dosage: UNK
     Route: 058
     Dates: start: 20190201, end: 20190329

REACTIONS (3)
  - Peritonitis [Fatal]
  - Intestinal ischaemia [Fatal]
  - Sepsis [Fatal]

NARRATIVE: CASE EVENT DATE: 20190324
